FAERS Safety Report 7465228-5 (Version None)
Quarter: 2011Q2

REPORT INFORMATION
  Report Type: 
  Country: None (occurrence: None)
  Receive Date: 20110509
  Receipt Date: 20110428
  Transmission Date: 20111010
  Serious: Yes (Hospitalization, Disabling)
  Sender: FDA-Public Use
  Company Number: US-BAYER-2011-036743

PATIENT
  Age: 35 Year
  Sex: Female

DRUGS (1)
  1. MIRENA [Suspect]
     Indication: MENORRHAGIA
     Dosage: 20 ?G, CONT
     Route: 015
     Dates: start: 20100416, end: 20110323

REACTIONS (4)
  - THROMBOSIS [None]
  - MENORRHAGIA [None]
  - WALKING DISABILITY [None]
  - PAIN IN EXTREMITY [None]
